FAERS Safety Report 7789688-5 (Version None)
Quarter: 2011Q3

REPORT INFORMATION
  Report Type: 
  Country: None (occurrence: None)
  Receive Date: 20110930
  Receipt Date: 20110926
  Transmission Date: 20111222
  Serious: Yes (Death, Hospitalization)
  Sender: FDA-Public Use
  Company Number: IT-CEPHALON-2011005168

PATIENT
  Sex: Male
  Weight: 80 kg

DRUGS (4)
  1. DEXAMETHASONE [Suspect]
     Route: 048
     Dates: start: 20110824, end: 20110904
  2. DEXAMETHASONE [Suspect]
     Route: 048
     Dates: start: 20110911, end: 20110921
  3. TREANDA [Suspect]
     Route: 042
     Dates: start: 20110824
  4. VELCADE [Suspect]
     Route: 042
     Dates: start: 20110824, end: 20110903

REACTIONS (3)
  - HAEMATOTOXICITY [None]
  - DISEASE PROGRESSION [None]
  - RENAL FAILURE [None]
